FAERS Safety Report 7029286-4 (Version None)
Quarter: 2010Q4

REPORT INFORMATION
  Report Type: 
  Country: None (occurrence: None)
  Receive Date: 20101005
  Receipt Date: 20100921
  Transmission Date: 20110411
  Serious: Yes (Hospitalization, Other)
  Sender: FDA-Public Use
  Company Number: PHEH2009US17987

PATIENT
  Sex: Male

DRUGS (40)
  1. ZOMETA [Suspect]
  2. XELODA [Suspect]
     Indication: BREAST CANCER METASTATIC
  3. MORPHINE [Concomitant]
  4. MS CONTIN [Concomitant]
  5. LEVAQUIN [Concomitant]
  6. ROBITUSSIN [Concomitant]
  7. MARINOL [Concomitant]
  8. SENOKOT                                 /UNK/ [Concomitant]
  9. MIRALAX [Concomitant]
  10. ROXANOL [Concomitant]
  11. ATIVAN [Concomitant]
  12. ARIXTRA [Concomitant]
  13. COUMADIN [Concomitant]
  14. LAPATINIB [Concomitant]
  15. DURAGESIC-100 [Concomitant]
  16. ADVAIR DISKUS 100/50 [Concomitant]
  17. PREDNISONE [Concomitant]
  18. SPIRIVA [Concomitant]
  19. COMBIVENT                               /GFR/ [Concomitant]
  20. DECADRON [Concomitant]
  21. VANCOMYCIN [Concomitant]
  22. CHANTIX [Concomitant]
  23. FENTANYL [Concomitant]
  24. CIPROFLOXACIN [Concomitant]
  25. TYLENOL [Concomitant]
  26. PROTONIX [Concomitant]
  27. MEGACE [Concomitant]
  28. REGLAN [Concomitant]
  29. PREVACID [Concomitant]
  30. CYMBALTA [Concomitant]
  31. XANAX [Concomitant]
  32. NEURONTIN [Concomitant]
  33. XOPENEX [Concomitant]
  34. AMBIEN [Concomitant]
  35. HYDROCODONE [Concomitant]
  36. TYKERB [Concomitant]
  37. ZOFRAN [Concomitant]
  38. CRESTOR [Concomitant]
  39. ZETIA [Concomitant]
  40. GABAPENTIN [Concomitant]

REACTIONS (68)
  - ABDOMINAL PAIN UPPER [None]
  - ADRENAL INSUFFICIENCY [None]
  - ADRENAL MASS [None]
  - ANXIETY [None]
  - AORTIC VALVE INCOMPETENCE [None]
  - APHAGIA [None]
  - ARTHRALGIA [None]
  - ASTHENIA [None]
  - ATROPHY [None]
  - BACK PAIN [None]
  - BILE DUCT STENT INSERTION [None]
  - CHOLECYSTECTOMY [None]
  - CHOLELITHIASIS [None]
  - CONFUSIONAL STATE [None]
  - CONSTIPATION [None]
  - DEEP VEIN THROMBOSIS [None]
  - DEFORMITY [None]
  - DEHYDRATION [None]
  - DIARRHOEA [None]
  - DIASTOLIC DYSFUNCTION [None]
  - DISACCHARIDE METABOLISM DISORDER [None]
  - DIVERTICULUM [None]
  - DIZZINESS [None]
  - DYSPHONIA [None]
  - DYSPNOEA [None]
  - EMOTIONAL DISTRESS [None]
  - FATIGUE [None]
  - FLANK PAIN [None]
  - HICCUPS [None]
  - HYDROCELE [None]
  - HYDROCELE OPERATION [None]
  - HYPOACUSIS [None]
  - HYPOAESTHESIA [None]
  - HYPOTENSION [None]
  - INFECTION [None]
  - INJURY [None]
  - JAW OPERATION [None]
  - MENTAL STATUS CHANGES [None]
  - METASTASES TO BONE [None]
  - METASTASES TO LUNG [None]
  - METASTASES TO LYMPH NODES [None]
  - METASTASES TO SPINE [None]
  - NAUSEA [None]
  - NECK MASS [None]
  - OSTEOARTHRITIS [None]
  - OSTEONECROSIS OF JAW [None]
  - OVERDOSE [None]
  - PAIN [None]
  - PAIN IN EXTREMITY [None]
  - PARAESTHESIA [None]
  - PATHOLOGICAL FRACTURE [None]
  - PERFORATION BILE DUCT [None]
  - PHYSICAL DISABILITY [None]
  - PLASMA PROTEIN METABOLISM DISORDER [None]
  - PNEUMONIA [None]
  - PULMONARY EMBOLISM [None]
  - REFLUX OESOPHAGITIS [None]
  - RETROPERITONEAL NEOPLASM METASTATIC [None]
  - SEPSIS [None]
  - SKIN EXFOLIATION [None]
  - SPINAL OSTEOARTHRITIS [None]
  - TRICUSPID VALVE INCOMPETENCE [None]
  - TUMOUR MARKER INCREASED [None]
  - URETERAL STENT INSERTION [None]
  - URETERIC OBSTRUCTION [None]
  - URINARY TRACT INFECTION [None]
  - VOMITING [None]
  - WEIGHT DECREASED [None]
